FAERS Safety Report 4640683-4 (Version None)
Quarter: 2005Q2

REPORT INFORMATION
  Report Type: 
  Country: None (occurrence: None)
  Receive Date: 20050419
  Receipt Date: 20050407
  Transmission Date: 20051028
  Serious: Yes (Disabling, Other)
  Sender: FDA-Public Use
  Company Number: 2005051749

PATIENT
  Age: 61 Year
  Sex: Male
  Weight: 82.6 kg

DRUGS (9)
  1. CARDURA [Suspect]
     Indication: HYPERTENSION
     Dosage: SEE IMAGE
     Route: 048
     Dates: start: 20000701, end: 20030201
  2. CARDURA [Suspect]
     Indication: HYPERTENSION
     Dosage: SEE IMAGE
     Route: 048
     Dates: start: 20001101, end: 20030201
  3. CARDURA XL [Suspect]
     Indication: HYPERTENSION
     Dosage: 8 MG (8 MG,QD), ORAL
     Route: 048
     Dates: start: 20030201
  4. ASPIRIN [Concomitant]
  5. PRAVASTATIN SODIUM [Concomitant]
  6. INDAPAMIDE [Concomitant]
  7. PERINDOPRIL (PERINDOPRIL) [Concomitant]
  8. ATENOLOL [Concomitant]
  9. APOREX         (DEXTROPROPOXYPHENE HYDROCHLORIDE, PARACETAMOL) [Concomitant]

REACTIONS (5)
  - AFFECTIVE DISORDER [None]
  - ASTHENIA [None]
  - DEPRESSION [None]
  - LIBIDO DECREASED [None]
  - PERSONALITY CHANGE [None]
